FAERS Safety Report 9163157 (Version 1)
Quarter: 2013Q1

REPORT INFORMATION
  Report Type: Spontaneous
  Country: CH (occurrence: CH)
  Receive Date: 20130314
  Receipt Date: 20130314
  Transmission Date: 20140127
  Serious: Yes (Disabling)
  Sender: FDA-Public Use
  Company Number: CH-B.I. PHARMACEUTICALS,INC./RIDGEFIELD-2013-AP-00192SI

PATIENT
  Age: 72 Year
  Sex: Male

DRUGS (3)
  1. PRADAXA [Suspect]
     Indication: ATRIAL FIBRILLATION
     Dosage: 300 MG
     Dates: start: 20130207, end: 20130211
  2. CORDARONE [Concomitant]
     Indication: ATRIAL FIBRILLATION
  3. PROSTAGUTT [Concomitant]

REACTIONS (2)
  - Dysphagia [Recovered/Resolved]
  - Trismus [Recovered/Resolved]
